FAERS Safety Report 4587182-6 (Version None)
Quarter: 2005Q1

REPORT INFORMATION
  Report Type: 
  Country: None (occurrence: None)
  Receive Date: 20050215
  Receipt Date: 20050202
  Transmission Date: 20050727
  Serious: Yes (Other)
  Sender: FDA-Public Use
  Company Number: 200510503BCC

PATIENT
  Age: 41 Year
  Sex: Female

DRUGS (1)
  1. ALEVE [Suspect]
     Dosage: QD

REACTIONS (1)
  - MYOCARDIAL INFARCTION [None]
